FAERS Safety Report 9502425 (Version 1)
Quarter: 2013Q3

REPORT INFORMATION
  Report Type: Report from Study
  Country: US (occurrence: US)
  Receive Date: 20130906
  Receipt Date: 20130906
  Transmission Date: 20140515
  Serious: Yes (Other)
  Sender: FDA-Public Use
  Company Number: US-ROCHE-1270008

PATIENT
  Sex: Male

DRUGS (4)
  1. AVASTIN [Suspect]
     Indication: DIABETIC RETINAL OEDEMA
     Dosage: RIGHT EYE
     Route: 065
  2. LUCENTIS [Suspect]
     Indication: DIABETIC RETINAL OEDEMA
     Dosage: RIGHT EYE
     Route: 065
  3. ASPIRIN [Concomitant]
     Route: 048
  4. HUMALOG [Concomitant]
     Dosage: 70/30 STRENGTH
     Route: 065

REACTIONS (3)
  - Cystoid macular oedema [Unknown]
  - Drug withdrawal syndrome [Unknown]
  - Intraocular pressure increased [Unknown]
